FAERS Safety Report 8816820 (Version 1)
Quarter: 2012Q4

REPORT INFORMATION
  Report Type: Spontaneous
  Country: GB (occurrence: None)
  Receive Date: 20121001
  Receipt Date: 20121001
  Transmission Date: 20130627
  Serious: Yes (Death, Hospitalization)
  Sender: FDA-Public Use
  Company Number: 1423071

PATIENT
  Age: 49 Year
  Sex: Female

DRUGS (15)
  1. GEMCITABINE HYDROCHLORIDE [Suspect]
     Indication: DRUG USE FOR UNKNOWN INDICATION
     Dates: start: 20111212
  2. GEMCITABINE HYDROCHLORIDE [Suspect]
     Indication: DRUG USE FOR UNKNOWN INDICATION
     Dates: start: 20111219
  3. GEMCITABINE HYDROCHLORIDE [Suspect]
     Indication: DRUG USE FOR UNKNOWN INDICATION
     Dates: start: 20120103
  4. GEMCITABINE HYDROCHLORIDE [Suspect]
     Indication: DRUG USE FOR UNKNOWN INDICATION
     Dates: start: 20120110
  5. GEMCITABINE HYDROCHLORIDE [Suspect]
     Indication: DRUG USE FOR UNKNOWN INDICATION
     Dates: start: 20120123
  6. GEMCITABINE HYDROCHLORIDE [Suspect]
     Indication: DRUG USE FOR UNKNOWN INDICATION
     Dates: start: 20120130
  7. CISPLATIN [Suspect]
     Indication: DRUG USE FOR UNKNOWN INDICATION
     Dates: start: 20111212
  8. CISPLATIN [Suspect]
     Indication: DRUG USE FOR UNKNOWN INDICATION
     Dates: start: 20120103
  9. CISPLATIN [Suspect]
     Indication: DRUG USE FOR UNKNOWN INDICATION
     Dates: start: 20120123
  10. DALTEPARIN SODIUM [Suspect]
     Indication: LUNG CANCER
     Dates: start: 20111212
  11. PARACETAMOL [Concomitant]
  12. FERROUS SULFATE [Concomitant]
  13. DOMPERIDONE [Concomitant]
  14. SYMBICORT [Concomitant]
  15. SEREVENT DISKUS [Concomitant]

REACTIONS (7)
  - Haemoptysis [None]
  - Cardiac arrest [None]
  - Oropharyngeal pain [None]
  - Cough [None]
  - Malaise [None]
  - Anaemia [None]
  - Thrombocytopenia [None]
